FAERS Safety Report 5304589-X (Version None)
Quarter: 2007Q2

REPORT INFORMATION
  Report Type: 
  Country: None (occurrence: None)
  Receive Date: 20070423
  Receipt Date: 20070411
  Transmission Date: 20071010
  Serious: Yes (Hospitalization)
  Sender: FDA-Public Use
  Company Number: JP-GLAXOSMITHKLINE-B0446482A

PATIENT
  Age: 1 Year
  Sex: Female

DRUGS (15)
  1. AMOXICILLIN TRIHYDRATE [Suspect]
     Indication: BACTERIAL INFECTION
     Route: 048
     Dates: start: 20061003, end: 20061004
  2. DORMICUM [Suspect]
     Indication: CONVULSION
     Dosage: 1.2MGH PER DAY
     Route: 042
     Dates: start: 20061012, end: 20061017
  3. FROBEN [Suspect]
     Indication: KAWASAKI'S DISEASE
     Dosage: 50MG PER DAY
     Route: 048
     Dates: start: 20060915, end: 20061016
  4. GLOVENIN [Suspect]
     Indication: KAWASAKI'S DISEASE
     Dosage: 2GK PER DAY
     Route: 065
     Dates: start: 20060915, end: 20061010
  5. FLUMARIN [Suspect]
     Indication: KAWASAKI'S DISEASE
     Dosage: 100MGK PER DAY
     Route: 042
     Dates: start: 20061004, end: 20061016
  6. HORIZON [Suspect]
     Indication: CONVULSION
     Route: 042
     Dates: start: 20061012, end: 20061012
  7. FLOMOX [Suspect]
     Indication: DRUG USE FOR UNKNOWN INDICATION
     Route: 065
  8. POLYETHYLENE GLYCOL [Suspect]
     Indication: DRUG USE FOR UNKNOWN INDICATION
     Route: 065
  9. DIAZEPAM [Suspect]
     Indication: CONVULSION
     Dates: start: 20061012
  10. CEFZON [Suspect]
     Route: 065
  11. ACETAMINOPHEN [Concomitant]
     Dosage: 100MG AS REQUIRED
     Route: 054
     Dates: start: 20061012, end: 20061031
  12. GASTER [Concomitant]
     Indication: DRUG USE FOR UNKNOWN INDICATION
     Route: 042
     Dates: start: 20061012, end: 20061017
  13. IMMUNE GLOBULIN INTRAVENOUS (HUMAN) [Concomitant]
     Indication: KAWASAKI'S DISEASE
     Route: 042
     Dates: start: 20061015, end: 20061016
  14. ULINASTATIN [Concomitant]
     Indication: KAWASAKI'S DISEASE
     Route: 065
     Dates: start: 20061009, end: 20061016
  15. PREDNISOLONE [Concomitant]
     Dosage: 6MG PER DAY
     Dates: start: 20061113

REACTIONS (12)
  - BACTERIAL INFECTION [None]
  - CONVULSION [None]
  - DISSEMINATED INTRAVASCULAR COAGULATION [None]
  - DRUG RASH WITH EOSINOPHILIA AND SYSTEMIC SYMPTOMS [None]
  - EPIDERMOLYSIS [None]
  - EXCORIATION [None]
  - HEPATIC FUNCTION ABNORMAL [None]
  - HYPERTHERMIA [None]
  - ILL-DEFINED DISORDER [None]
  - PYREXIA [None]
  - RASH [None]
  - VITAMIN K DEFICIENCY [None]
